FAERS Safety Report 18436958 (Version 2)
Quarter: 2021Q1

REPORT INFORMATION
  Report Type: Report from Study
  Country: NO (occurrence: NO)
  Receive Date: 20201028
  Receipt Date: 20210209
  Transmission Date: 20210419
  Serious: Yes (Hospitalization)
  Sender: FDA-Public Use
  Company Number: NO-BRISTOL-MYERS SQUIBB COMPANY-BMS-2020-087159

PATIENT
  Age: 68 Year
  Sex: Female
  Weight: 64.9 kg

DRUGS (13)
  1. CALCIGRAND FORTE [Concomitant]
     Indication: PRODUCT USED FOR UNKNOWN INDICATION
     Dosage: 1000 MILLIGRAM, QD
     Route: 048
     Dates: start: 20180508
  2. ZOMETA [Concomitant]
     Active Substance: ZOLEDRONIC ACID
     Indication: PRODUCT USED FOR UNKNOWN INDICATION
     Dosage: 4 MILLIGRAM, Q4WK
     Route: 042
     Dates: start: 201905
  3. ELOTUZUMAB. [Suspect]
     Active Substance: ELOTUZUMAB
     Indication: PLASMA CELL MYELOMA
     Dosage: 570 MILLIGRAM
     Route: 042
     Dates: start: 20201012
  4. DEXAMETHASONE. [Suspect]
     Active Substance: DEXAMETHASONE
     Indication: PLASMA CELL MYELOMA
     Dosage: 28 MGX 1/WEEK
     Route: 048
     Dates: start: 20201012
  5. NEURONTIN [Concomitant]
     Active Substance: GABAPENTIN
     Indication: PERIPHERAL SENSORY NEUROPATHY
     Dosage: 300 MILLIGRAM, BID
     Route: 048
     Dates: start: 20200228
  6. POMALIDOMIDE [Suspect]
     Active Substance: POMALIDOMIDE
     Indication: PLASMA CELL MYELOMA
     Dosage: 4 MILLIGRAM
     Route: 048
     Dates: start: 20201012
  7. CALCIGRAND FORTE [Concomitant]
     Dosage: 800 IU INTERNATIONAL UNIT(S), QD
     Route: 048
     Dates: start: 20180508
  8. TRAMAGESIC [Concomitant]
     Indication: MALIGNANT MELANOMA
  9. AERIUS [EBASTINE] [Concomitant]
     Active Substance: EBASTINE
     Indication: IDIOPATHIC URTICARIA
     Dosage: 6 MILLIGRAM, QD
     Route: 048
     Dates: start: 202007
  10. MAGNESIUM [Concomitant]
     Active Substance: MAGNESIUM
     Indication: VITAMIN SUPPLEMENTATION
     Dosage: 360 MILLIGRAM, BID
     Route: 048
     Dates: start: 2019
  11. TRAMAGESIC [Concomitant]
     Indication: BACK PAIN
     Dosage: 160 MILLIGRAM, QD
     Route: 048
     Dates: start: 20200607
  12. VALTREX [Concomitant]
     Active Substance: VALACYCLOVIR HYDROCHLORIDE
     Indication: ANTIVIRAL TREATMENT
     Dosage: 250 MILLIGRAM, BID
     Route: 048
     Dates: start: 20180508
  13. SOMAC [Concomitant]
     Active Substance: PANTOPRAZOLE SODIUM
     Indication: PRODUCT USED FOR UNKNOWN INDICATION
     Dosage: 20 MILLIGRAM, QD
     Route: 048
     Dates: start: 20200116

REACTIONS (1)
  - Upper respiratory tract infection [Recovered/Resolved]

NARRATIVE: CASE EVENT DATE: 20201013
